FAERS Safety Report 15638976 (Version 1)
Quarter: 2018Q4

REPORT INFORMATION
  Report Type: Spontaneous
  Country: US (occurrence: US)
  Receive Date: 20181120
  Receipt Date: 20181120
  Transmission Date: 20190205
  Serious: No
  Sender: FDA-Public Use
  Company Number: US-PERRIGO-18US009193

PATIENT
  Age: 63 Year
  Sex: Female
  Weight: 47.62 kg

DRUGS (2)
  1. POLYETHYLENE GLYCOL 3350. [Suspect]
     Active Substance: POLYETHYLENE GLYCOL 3350
     Dosage: 17 G, QD
     Route: 048
     Dates: start: 20180904
  2. POLYETHYLENE GLYCOL 3350. [Suspect]
     Active Substance: POLYETHYLENE GLYCOL 3350
     Indication: CONSTIPATION
     Dosage: 1 TEASPOON, SINGLE
     Route: 048
     Dates: start: 20180903, end: 20180903

REACTIONS (3)
  - Drug ineffective [Unknown]
  - Hyperhidrosis [Recovered/Resolved with Sequelae]
  - Underdose [Recovering/Resolving]

NARRATIVE: CASE EVENT DATE: 20180903
